FAERS Safety Report 14835176 (Version 1)
Quarter: 2018Q2

REPORT INFORMATION
  Report Type: Spontaneous
  Country: DK (occurrence: DK)
  Receive Date: 20180502
  Receipt Date: 20180502
  Transmission Date: 20180711
  Serious: Yes (Other)
  Sender: FDA-Public Use
  Company Number: PHHY2018DK075507

PATIENT
  Age: 46 Year
  Sex: Female

DRUGS (2)
  1. ESTRADIOL. [Suspect]
     Active Substance: ESTRADIOL
     Indication: PRODUCT USED FOR UNKNOWN INDICATION
     Dosage: 2 MG, QD
     Route: 048
     Dates: start: 20160824, end: 20170209
  2. MIRENA [Suspect]
     Active Substance: LEVONORGESTREL
     Indication: HORMONE LEVEL ABNORMAL
     Dosage: 1 DF, QD (STYRKE: 20 MIKROG./24 TIMER   )
     Route: 015
     Dates: start: 20160823, end: 20161221

REACTIONS (2)
  - Breast cancer female [Unknown]
  - Breast mass [Recovered/Resolved]

NARRATIVE: CASE EVENT DATE: 2017
